FAERS Safety Report 5555807-4 (Version None)
Quarter: 2007Q4

REPORT INFORMATION
  Report Type: 
  Country: None (occurrence: None)
  Receive Date: 20071213
  Receipt Date: 20070829
  Transmission Date: 20080405
  Serious: No
  Sender: FDA-Public Use
  Company Number: US-AMGEN-KDL238769

PATIENT
  Sex: Female
  Weight: 80 kg

DRUGS (10)
  1. ENBREL [Suspect]
     Indication: PSORIASIS
     Route: 058
     Dates: start: 20030701
  2. THYROID TAB [Concomitant]
  3. ASPARTATE MAGNESIUM [Concomitant]
  4. FOLIC ACID [Concomitant]
  5. METRO [Concomitant]
  6. METFORMIN HCL [Concomitant]
  7. LISINOPRIL [Concomitant]
  8. LIPITOR [Concomitant]
  9. CRESTOR [Concomitant]
  10. RAPTIVA [Concomitant]

REACTIONS (9)
  - ASTHENIA [None]
  - EYE SWELLING [None]
  - FATIGUE [None]
  - GENERALISED ERYTHEMA [None]
  - HAEMORRHAGE [None]
  - HYPERSENSITIVITY [None]
  - NAIL PITTING [None]
  - PSORIASIS [None]
  - SKIN NEOPLASM BLEEDING [None]
